APPROVED DRUG PRODUCT: TRIAMTERENE AND HYDROCHLOROTHIAZIDE
Active Ingredient: HYDROCHLOROTHIAZIDE; TRIAMTERENE
Strength: 25MG;37.5MG
Dosage Form/Route: CAPSULE;ORAL
Application: A208358 | Product #001 | TE Code: AB
Applicant: CADILA HEALTHCARE LTD
Approved: Feb 11, 2019 | RLD: No | RS: No | Type: RX